FAERS Safety Report 12539775 (Version 1)
Quarter: 2016Q3

REPORT INFORMATION
  Report Type: Spontaneous
  Country: US (occurrence: None)
  Receive Date: 20160707
  Receipt Date: 20160707
  Transmission Date: 20161109
  Serious: No
  Sender: FDA-Public Use
  Company Number: None

PATIENT
  Age: 69 Year
  Sex: Female

DRUGS (1)
  1. MUCINEX [Suspect]
     Active Substance: GUAIFENESIN
     Indication: SINUS DISORDER
     Dosage: 3 TABLETS EVERY 12 HOURS TAKEN BY MOUTH
     Route: 048
     Dates: start: 20160622, end: 20160623

REACTIONS (10)
  - Headache [None]
  - Swelling face [None]
  - Rash [None]
  - Dizziness [None]
  - Lip swelling [None]
  - Urticaria [None]
  - Dry mouth [None]
  - Joint swelling [None]
  - Pyrexia [None]
  - Pruritus [None]

NARRATIVE: CASE EVENT DATE: 20160624
